FAERS Safety Report 7557049-X (Version None)
Quarter: 2011Q2

REPORT INFORMATION
  Report Type: 
  Country: None (occurrence: None)
  Receive Date: 20110620
  Receipt Date: 20110616
  Transmission Date: 20111010
  Serious: Yes (Death, Hospitalization)
  Sender: FDA-Public Use
  Company Number: PHHY2009CA31929

PATIENT
  Sex: Female

DRUGS (1)
  1. SANDOSTATIN LAR [Suspect]
     Indication: METASTATIC BRONCHIAL CARCINOMA
     Dosage: 30 MG, QMO
     Route: 030
     Dates: start: 20090505

REACTIONS (6)
  - DEATH [None]
  - RIB FRACTURE [None]
  - BLOOD GLUCOSE ABNORMAL [None]
  - DYSPNOEA [None]
  - NAUSEA [None]
  - FALL [None]
